FAERS Safety Report 5265039-5 (Version None)
Quarter: 2007Q1

REPORT INFORMATION
  Report Type: 
  Country: None (occurrence: None)
  Receive Date: 20061122
  Receipt Date: 20060724
  Transmission Date: 20070707
  Serious: Yes (Hospitalization, Other)
  Sender: FDA-Public Use
  Company Number: 2006MP000912

PATIENT
  Age: 70 Year
  Sex: Female
  Weight: 88 kg

DRUGS (7)
  1. GLIADEL [Suspect]
     Indication: GLIOBLASTOMA MULTIFORME
     Dosage: X1;ICER
     Dates: start: 20060301
  2. 06-BENZYLGUANINE (06BG) [Suspect]
     Indication: GLIOBLASTOMA MULTIFORME
     Dosage: SEE IMAGE
     Route: 042
     Dates: start: 20060301, end: 20060305
  3. DILANTIN [Concomitant]
  4. KEPPRA [Concomitant]
  5. LIPITOR [Concomitant]
  6. TOPROL-XL [Concomitant]
  7. DOXYCYCLINE [Concomitant]

REACTIONS (2)
  - ANTICONVULSANT DRUG LEVEL ABNORMAL [None]
  - CONVULSION [None]
